FAERS Safety Report 18765597 (Version 2)
Quarter: 2021Q1

REPORT INFORMATION
  Report Type: Spontaneous
  Country: DE (occurrence: DE)
  Receive Date: 20210120
  Receipt Date: 20210217
  Transmission Date: 20210419
  Serious: Yes (Hospitalization, Other)
  Sender: FDA-Public Use
  Company Number: DE-BIOGEN-2021BI00966274

PATIENT
  Age: 55 Year
  Sex: Male

DRUGS (10)
  1. VIGANTOLETTEN [Concomitant]
     Active Substance: CHOLECALCIFEROL
     Indication: PROPHYLAXIS
     Dosage: 1?0?0?0; 25 UG/1 UNIT
     Route: 048
  2. XARELTO [Concomitant]
     Active Substance: RIVAROXABAN
     Indication: COAGULOPATHY
     Dosage: 1?0?0?0
     Route: 048
  3. VIGANTOLETTEN [Concomitant]
     Active Substance: CHOLECALCIFEROL
     Indication: PRODUCT USED FOR UNKNOWN INDICATION
     Dosage: 1000 ONCE DAILY
     Route: 065
  4. PANTOPRAZOLE [Concomitant]
     Active Substance: PANTOPRAZOLE
     Indication: PRODUCT USED FOR UNKNOWN INDICATION
     Route: 065
  5. TECFIDERA [Suspect]
     Active Substance: DIMETHYL FUMARATE
     Indication: RELAPSING MULTIPLE SCLEROSIS
     Dosage: MIANTENANCE DOSE
     Route: 048
     Dates: start: 201405
  6. GENEPAN [Concomitant]
     Indication: PROPHYLAXIS
     Dosage: 1?0?0?0, 22.6 MG/1 UNIT
     Route: 048
  7. MOVICOL [Concomitant]
     Active Substance: POLYETHYLENE GLYCOL 3350\POTASSIUM CHLORIDE\SODIUM BICARBONATE\SODIUM CHLORIDE
     Indication: PRODUCT USED FOR UNKNOWN INDICATION
     Dosage: AS NEEDED
     Route: 048
  8. TECFIDERA [Suspect]
     Active Substance: DIMETHYL FUMARATE
     Route: 065
  9. DIABESIN [Concomitant]
     Indication: HYPERTENSION
     Dosage: 1?0?1?0
     Route: 048
  10. TECFIDERA [Suspect]
     Active Substance: DIMETHYL FUMARATE
     Dosage: 1?0?0?0
     Route: 065

REACTIONS (13)
  - Pulmonary embolism [Recovered/Resolved]
  - COVID-19 pneumonia [Recovered/Resolved with Sequelae]
  - Hypotonia [Unknown]
  - Underdose [Unknown]
  - Altered state of consciousness [Unknown]
  - Pneumonia aspiration [Recovered/Resolved]
  - Relapsing-remitting multiple sclerosis [Unknown]
  - Pneumonia [Recovered/Resolved]
  - Cardiogenic shock [Unknown]
  - Right ventricular failure [Recovered/Resolved]
  - Generalised tonic-clonic seizure [Unknown]
  - Vomiting [Unknown]
  - Respiratory failure [Unknown]

NARRATIVE: CASE EVENT DATE: 20161210
